FAERS Safety Report 16668055 (Version 1)
Quarter: 2019Q3

REPORT INFORMATION
  Report Type: Spontaneous
  Country: GB (occurrence: GB)
  Receive Date: 20190805
  Receipt Date: 20190805
  Transmission Date: 20191004
  Serious: Yes (Life-Threatening, Hospitalization, Other)
  Sender: FDA-Public Use
  Company Number: GB-ASTRAZENECA-2019SF10289

PATIENT
  Age: 71 Year
  Sex: Male

DRUGS (6)
  1. AMLODIPINE [Concomitant]
     Active Substance: AMLODIPINE BESYLATE
  2. HUMULIN L [Concomitant]
     Active Substance: INSULIN HUMAN
  3. DAPAGLIFLOZIN. [Suspect]
     Active Substance: DAPAGLIFLOZIN
     Dosage: 10.0MG UNKNOWN
     Route: 048
     Dates: start: 20190619, end: 20190706
  4. TRULICITY [Concomitant]
     Active Substance: DULAGLUTIDE
  5. RAMIPRIL. [Concomitant]
     Active Substance: RAMIPRIL
  6. GLUCOPHAGE XR [Concomitant]
     Active Substance: METFORMIN HYDROCHLORIDE

REACTIONS (4)
  - Cardiac arrest [Unknown]
  - Hypophagia [Unknown]
  - Hypotension [Unknown]
  - Diabetic ketoacidosis [Unknown]
